FAERS Safety Report 6179335-0 (Version None)
Quarter: 2009Q2

REPORT INFORMATION
  Report Type: 
  Country: None (occurrence: None)
  Receive Date: 20090429
  Receipt Date: 20090429
  Transmission Date: 20091009
  Serious: Yes (Other)
  Sender: FDA-Public Use
  Company Number: None

PATIENT
  Age: 61 Year
  Sex: Female
  Weight: 56.5 kg

DRUGS (3)
  1. NUPERCAINAL (NCH) (CINCHOCAINE) OINTMENT [Suspect]
     Indication: ANAL FISSURE
     Dosage: 1 APPLICATION DAILY, RECTAL
     Route: 054
     Dates: start: 20040101
  2. TANDRILAX (CAFFEINE, CARISOPRODOL, DICLOFENAC SODIUM, PARACETAMOL) [Concomitant]
  3. POLICRESULEN (POLICRESULEN) [Concomitant]

REACTIONS (16)
  - ABDOMINAL DISTENSION [None]
  - ANAL FISSURE [None]
  - ANORECTAL DISCOMFORT [None]
  - APPLICATION SITE IRRITATION [None]
  - BEDRIDDEN [None]
  - BLOOD PRESSURE DECREASED [None]
  - CONSTIPATION [None]
  - DEATH OF RELATIVE [None]
  - DEPRESSION [None]
  - HYPERTENSION [None]
  - HYPOPHAGIA [None]
  - MALAISE [None]
  - NAUSEA [None]
  - PROCTALGIA [None]
  - SOCIAL AVOIDANT BEHAVIOUR [None]
  - WEIGHT DECREASED [None]
